FAERS Safety Report 13494038 (Version 1)
Quarter: 2017Q2

REPORT INFORMATION
  Report Type: Report from Study
  Country: US (occurrence: US)
  Receive Date: 20170427
  Receipt Date: 20170427
  Transmission Date: 20170830
  Serious: Yes (Hospitalization, Other)
  Sender: FDA-Public Use
  Company Number: US-BIOGEN-2013BI087583

PATIENT
  Age: 57 Year
  Sex: Female

DRUGS (2)
  1. AVONEX [Suspect]
     Active Substance: INTERFERON BETA-1A
     Route: 030
     Dates: start: 200308, end: 20130901
  2. AVONEX [Suspect]
     Active Substance: INTERFERON BETA-1A
     Indication: MULTIPLE SCLEROSIS
     Route: 030
     Dates: start: 20000909, end: 200308

REACTIONS (35)
  - Suicidal ideation [Recovered/Resolved]
  - Musculoskeletal discomfort [Not Recovered/Not Resolved]
  - Laceration [Recovered/Resolved]
  - General symptom [Recovered/Resolved]
  - Gastrointestinal stoma complication [Unknown]
  - Retinal disorder [Not Recovered/Not Resolved]
  - Muscle spasticity [Unknown]
  - Hypoaesthesia [Not Recovered/Not Resolved]
  - Visual impairment [Recovered/Resolved]
  - Osteoporosis [Not Recovered/Not Resolved]
  - Ocular hyperaemia [Unknown]
  - Fatigue [Not Recovered/Not Resolved]
  - Neoplasm malignant [Recovered/Resolved]
  - Eye irritation [Recovered/Resolved]
  - Depressed mood [Recovered/Resolved]
  - Retinal detachment [Recovered/Resolved]
  - Sjogren^s syndrome [Not Recovered/Not Resolved]
  - Gastrointestinal necrosis [Unknown]
  - Retinal tear [Recovered/Resolved]
  - Normal tension glaucoma [Not Recovered/Not Resolved]
  - Head injury [Recovered/Resolved]
  - Intraocular pressure test [Not Recovered/Not Resolved]
  - Demyelination [Not Recovered/Not Resolved]
  - Cataract [Not Recovered/Not Resolved]
  - Visual impairment [Recovered/Resolved]
  - Post lumbar puncture syndrome [Recovered/Resolved]
  - Renal injury [Unknown]
  - Post-traumatic stress disorder [Not Recovered/Not Resolved]
  - Dermatitis contact [Recovered/Resolved]
  - Mobility decreased [Recovered/Resolved]
  - Bone disorder [Not Recovered/Not Resolved]
  - General physical health deterioration [Not Recovered/Not Resolved]
  - Temperature intolerance [Not Recovered/Not Resolved]
  - Gastrointestinal disorder [Not Recovered/Not Resolved]
  - Optic neuritis [Not Recovered/Not Resolved]

NARRATIVE: CASE EVENT DATE: 2009
